FAERS Safety Report 6938127-2 (Version None)
Quarter: 2010Q3

REPORT INFORMATION
  Report Type: 
  Country: None (occurrence: None)
  Receive Date: 20100817
  Receipt Date: 20100729
  Transmission Date: 20110219
  Serious: Yes (Hospitalization)
  Sender: FDA-Public Use
  Company Number: 7012513

PATIENT
  Age: 45 Year
  Sex: Female

DRUGS (8)
  1. LEVOTHYROXINE SODIUM [Suspect]
     Indication: PRODUCT USED FOR UNKNOWN INDICATION
     Dosage: 137.5 MCG (137.5 MCG, 1 D) ORAL
     Route: 048
     Dates: start: 20090101
  2. MONOCRIXO (TRAMADOL HYDROCHLORIDE) (200 MG, PROLONGED-RELEASE CAPSULE) [Suspect]
     Indication: FIBROMYALGIA
     Dosage: 2 DF (2 DF, 1 IN 1 D) ORAL
     Route: 048
     Dates: start: 20090101
  3. THIOCOLCHICOSIDE (THIOCOLCHICOSIDE) [Suspect]
     Indication: FIBROMYALGIA
     Dosage: 3 DF (1 DF, 3 IN 1 D) ORAL
     Route: 048
  4. LYRICA [Suspect]
     Indication: FIBROMYALGIA
     Dosage: 2 DF (1 DF, 2 IN 1 D) ORAL
     Route: 048
     Dates: start: 20090101
  5. CHONDROSULF (CHONDROITIN SULFATE SODIUM) (400 MG, CAPSULE) (CHONDROITI [Suspect]
     Indication: FIBROMYALGIA
     Dosage: 3 DF (1 DF, 3 IN 1 D) ORAL
     Route: 048
     Dates: start: 20090101
  6. FLUOXETINE HCL [Suspect]
     Indication: PRODUCT USED FOR UNKNOWN INDICATION
     Dosage: 3 DF (1 DF, 3 IN 1 D) ORAL
     Route: 048
     Dates: start: 20090101
  7. TRIVASTAL (PIRIBEDIL) (PIRIBEDIL) [Suspect]
     Indication: FIBROMYALGIA
     Dosage: 1 DF (1 DF, 1 IN 1 D) ORAL
     Route: 048
  8. DAFALGAN (PARACETAMOL) (PARACETAMOL) [Suspect]
     Indication: PRODUCT USED FOR UNKNOWN INDICATION
     Dosage: 2 DF (2 DF) ORAL
     Route: 048
     Dates: start: 20090101

REACTIONS (7)
  - CONSTIPATION [None]
  - COORDINATION ABNORMAL [None]
  - DIARRHOEA [None]
  - HYPERHIDROSIS [None]
  - MEMORY IMPAIRMENT [None]
  - NAUSEA [None]
  - VOMITING [None]
